FAERS Safety Report 4427099-0 (Version None)
Quarter: 2004Q3

REPORT INFORMATION
  Report Type: 
  Country: None (occurrence: None)
  Receive Date: 20040811
  Receipt Date: 20040802
  Transmission Date: 20050211
  Serious: Yes (Hospitalization)
  Sender: FDA-Public Use
  Company Number: K200401157

PATIENT
  Age: 59 Year
  Sex: Female
  Weight: 104.3 kg

DRUGS (9)
  1. ALTACE [Suspect]
     Indication: HYPERTENSION
     Dosage: SEE IMAGE
     Route: 048
     Dates: start: 20040101, end: 20040101
  2. ALTACE [Suspect]
     Indication: HYPERTENSION
     Dosage: SEE IMAGE
     Route: 048
     Dates: start: 20040101, end: 20040415
  3. ALTACE [Suspect]
     Indication: HYPERTENSION
     Dosage: SEE IMAGE
     Route: 048
     Dates: start: 20040425, end: 20040728
  4. LASIX             (FUROSEMIDE, FUROSEMIDE SODIUM) [Concomitant]
  5. BENICAR [Concomitant]
  6. NORVASC [Concomitant]
  7. ALDACTONE [Concomitant]
  8. CLONIDINE [Concomitant]
  9. NITRO PATCH (GLYCERYL TRINITRATE) [Concomitant]

REACTIONS (4)
  - CARDIAC FAILURE CONGESTIVE [None]
  - DYSPNOEA [None]
  - OEDEMA PERIPHERAL [None]
  - PULMONARY OEDEMA [None]
